FAERS Safety Report 7040912-6 (Version None)
Quarter: 2010Q4

REPORT INFORMATION
  Report Type: 
  Country: None (occurrence: None)
  Receive Date: 20101013
  Receipt Date: 20101005
  Transmission Date: 20110411
  Serious: Yes (Death, Hospitalization)
  Sender: FDA-Public Use
  Company Number: FR-KINGPHARMUSA00001-K201000869

PATIENT
  Age: 79 Year
  Sex: Male

DRUGS (5)
  1. ALTACE [Suspect]
     Indication: HYPERTENSION
     Dosage: 2.5 MG, QD
     Route: 048
     Dates: start: 20100430, end: 20100514
  2. ALLOPURINOL [Concomitant]
     Dosage: UNK
     Dates: start: 20010101
  3. PARIET [Concomitant]
     Dosage: UNK
     Dates: start: 20020101
  4. HYTRIN [Concomitant]
     Dosage: UNK
     Dates: start: 20060101
  5. LASIX [Concomitant]
     Dosage: UNK
     Dates: start: 20050101

REACTIONS (4)
  - AGRANULOCYTOSIS [None]
  - LUNG INFECTION PSEUDOMONAL [None]
  - PSEUDOMONAL SEPSIS [None]
  - THROMBOSIS [None]
